FAERS Safety Report 15760947 (Version 2)
Quarter: 2019Q1

REPORT INFORMATION
  Report Type: Spontaneous
  Country: US (occurrence: US)
  Receive Date: 20181226
  Receipt Date: 20190102
  Transmission Date: 20190417
  Serious: No
  Sender: FDA-Public Use
  Company Number: US-PFIZER INC-2018527007

PATIENT
  Age: 73 Year
  Sex: Male
  Weight: 104.31 kg

DRUGS (9)
  1. MIRALAX [Concomitant]
     Active Substance: POLYETHYLENE GLYCOL 3350
     Dosage: UNK
  2. ELIQUIS [Concomitant]
     Active Substance: APIXABAN
     Dosage: UNK
  3. VITAMIN C [Concomitant]
     Active Substance: ASCORBIC ACID
     Dosage: UNK
  4. SUTENT [Suspect]
     Active Substance: SUNITINIB MALATE
     Indication: METASTATIC RENAL CELL CARCINOMA
     Dosage: 37.5 MG, CYCLIC, (THREE QUARTERS OF A DOSE), SMALL CAPSULES, DAILY FOR 2 WEEKS ON/1 WEEK OFF)
     Route: 048
     Dates: start: 20181213
  5. OXYCONTIN [Concomitant]
     Active Substance: OXYCODONE HYDROCHLORIDE
     Indication: PAIN
     Dosage: 10 MG, 2X/DAY(EVERY TWELVE HOURS)
     Route: 048
     Dates: start: 201801
  6. NASACORT [Concomitant]
     Active Substance: TRIAMCINOLONE ACETONIDE
     Dosage: UNK
  7. METFORMIN [Concomitant]
     Active Substance: METFORMIN HYDROCHLORIDE
     Dosage: UNK
  8. OXYCODONE [Concomitant]
     Active Substance: OXYCODONE
     Indication: PAIN
     Dosage: UNK, AS NEEDED(5 TO 10MG TABLET BY MOUTH, DEPENDING ON PAIN, EVERY SIX HOURS AS NEEDED)
     Route: 048
     Dates: start: 201612
  9. PROBIOTICS [Concomitant]
     Active Substance: PROBIOTICS NOS
     Dosage: UNK

REACTIONS (12)
  - Diarrhoea [Not Recovered/Not Resolved]
  - Swelling [Recovering/Resolving]
  - Blood disorder [Unknown]
  - Pelvic pain [Not Recovered/Not Resolved]
  - Condition aggravated [Not Recovered/Not Resolved]
  - Constipation [Not Recovered/Not Resolved]
  - Wheelchair user [Unknown]
  - Skin exfoliation [Recovered/Resolved with Sequelae]
  - Back pain [Not Recovered/Not Resolved]
  - Pruritus [Recovered/Resolved with Sequelae]
  - Arthralgia [Not Recovered/Not Resolved]
  - Memory impairment [Unknown]

NARRATIVE: CASE EVENT DATE: 20181223
